FAERS Safety Report 7407195-6 (Version None)
Quarter: 2011Q2

REPORT INFORMATION
  Report Type: 
  Country: None (occurrence: None)
  Receive Date: 20110411
  Receipt Date: 20110328
  Transmission Date: 20111010
  Serious: Yes (Other)
  Sender: FDA-Public Use
  Company Number: US-B.I. PHARMACEUTICALS,INC./RIDGEFIELD-2011-DE-02008GD

PATIENT
  Age: 52 Year
  Sex: Female

DRUGS (3)
  1. MELOXICAM [Suspect]
     Indication: OSTEOARTHRITIS
     Dosage: 15 MG
  2. OMEPRAZOLE [Concomitant]
     Dosage: 20 MG
  3. LISINOPRIL [Concomitant]
     Dosage: 20 MG

REACTIONS (8)
  - ABDOMINAL PAIN [None]
  - SMALL INTESTINAL ULCER HAEMORRHAGE [None]
  - JEJUNAL STENOSIS [None]
  - CONSTIPATION [None]
  - HAEMOGLOBIN DECREASED [None]
  - IRON DEFICIENCY [None]
  - VOMITING [None]
  - ILEAL STENOSIS [None]
